FAERS Safety Report 5571963-6 (Version None)
Quarter: 2007Q4

REPORT INFORMATION
  Report Type: 
  Country: None (occurrence: None)
  Receive Date: 20071221
  Receipt Date: 20071212
  Transmission Date: 20080405
  Serious: Yes (Other)
  Sender: FDA-Public Use
  Company Number: NL-GILEAD-2007-0014594

PATIENT
  Age: 3 Day
  Sex: Male

DRUGS (10)
  1. VIREAD [Suspect]
     Route: 064
  2. EFAVIRENZ [Suspect]
     Route: 064
  3. STAVUDINE [Suspect]
     Route: 064
  4. DIDANOSINE [Suspect]
     Route: 064
  5. LOPINAVIR AND RITONAVIR [Suspect]
     Route: 064
  6. LAMIVUDINE [Suspect]
     Route: 064
  7. ZIDOVUDINE [Suspect]
     Indication: PROPHYLAXIS AGAINST HIV INFECTION
  8. LAMIVUDINE [Suspect]
     Indication: PROPHYLAXIS AGAINST HIV INFECTION
  9. LOPINAVIR [Suspect]
     Indication: PROPHYLAXIS AGAINST HIV INFECTION
  10. RITONAVIR [Suspect]
     Indication: PROPHYLAXIS AGAINST HIV INFECTION

REACTIONS (4)
  - ARRHYTHMIA NEONATAL [None]
  - ATRIOVENTRICULAR BLOCK COMPLETE [None]
  - CONGESTIVE CARDIOMYOPATHY [None]
  - PREMATURE BABY [None]
